FAERS Safety Report 7003197-2 (Version None)
Quarter: 2010Q3

REPORT INFORMATION
  Report Type: 
  Country: None (occurrence: None)
  Receive Date: 20100920
  Receipt Date: 20100319
  Transmission Date: 20110219
  Serious: No
  Sender: FDA-Public Use
  Company Number: US-ASTRAZENECA-2010SE09077

PATIENT
  Age: 39 Year
  Sex: Female
  Weight: 74.8 kg

DRUGS (6)
  1. SEROQUEL [Suspect]
     Indication: BIPOLAR DISORDER
     Route: 048
     Dates: start: 20080101, end: 20091001
  2. SEROQUEL [Suspect]
     Indication: SCHIZOPHRENIA
     Route: 048
     Dates: start: 20080101, end: 20091001
  3. SEROQUEL [Suspect]
     Route: 048
     Dates: start: 20091001, end: 20091015
  4. SEROQUEL [Suspect]
     Route: 048
     Dates: start: 20091001, end: 20091015
  5. SEROQUEL [Suspect]
     Route: 048
     Dates: start: 20100226
  6. SEROQUEL [Suspect]
     Route: 048
     Dates: start: 20100226

REACTIONS (4)
  - DRUG DOSE OMISSION [None]
  - DRUG WITHDRAWAL SYNDROME [None]
  - HALLUCINATION [None]
  - IMPAIRED SELF-CARE [None]
